FAERS Safety Report 7773587 (Version 4)
Quarter: 2016Q1

REPORT INFORMATION
  Report Type: Report from Study
  Country: JP (occurrence: JP)
  Receive Date: 20110125
  Receipt Date: 20160128
  Transmission Date: 20160526
  Serious: Yes (Death, Life-Threatening, Hospitalization, Other)
  Sender: FDA-Public Use
  Company Number: PHHO2009JP06373

PATIENT
  Age: 43 Year
  Sex: Male
  Weight: 73 kg

DRUGS (22)
  1. ONEALFA [Concomitant]
     Active Substance: ALFACALCIDOL
     Indication: OSTEOPOROSIS
     Dosage: 0.5 UG, QD
     Route: 048
  2. BENZALIN [Concomitant]
     Active Substance: NITRAZEPAM
     Indication: PRODUCT USED FOR UNKNOWN INDICATION
     Route: 048
  3. OMEPRAL [Concomitant]
     Active Substance: OMEPRAZOLE
     Indication: HELICOBACTER INFECTION
     Dosage: 20 MG, BID
     Route: 048
     Dates: start: 20090703, end: 20090709
  4. KLARICID [Concomitant]
     Active Substance: CLARITHROMYCIN
     Indication: HELICOBACTER INFECTION
     Dosage: 200 MG, BID
     Route: 048
     Dates: start: 20090703, end: 20090709
  5. GILENYA [Suspect]
     Active Substance: FINGOLIMOD HYDROCHLORIDE
     Indication: MULTIPLE SCLEROSIS
     Dosage: 0.5 MG, QD
     Route: 048
     Dates: start: 20080226, end: 20081112
  6. LENDORMIN [Concomitant]
     Active Substance: BROTIZOLAM
     Indication: PRODUCT USED FOR UNKNOWN INDICATION
     Dosage: 0.25 MG, UNK
     Route: 065
  7. DEPAKENE [Concomitant]
     Active Substance: VALPROIC ACID
     Indication: SEIZURE
     Dosage: BID
     Route: 048
  8. MAGNESIUM OXIDE. [Concomitant]
     Active Substance: MAGNESIUM OXIDE
     Indication: CONSTIPATION
     Dosage: 1 G, BID
     Route: 048
  9. SELBEX [Concomitant]
     Active Substance: TEPRENONE
     Indication: PROPHYLAXIS AGAINST GASTROINTESTINAL ULCER
     Dosage: 0.5 G, QD
     Route: 048
     Dates: start: 20090819, end: 20090929
  10. PREDNISOLONE. [Concomitant]
     Active Substance: PREDNISOLONE
     Indication: MULTIPLE SCLEROSIS
     Route: 048
     Dates: start: 20091101, end: 20091107
  11. SODIUM CHLORIDE. [Concomitant]
     Active Substance: SODIUM CHLORIDE
     Indication: BLOOD SODIUM DECREASED
     Dosage: 1 G, TID
     Route: 065
     Dates: start: 20091102
  12. LIORESAL [Concomitant]
     Active Substance: BACLOFEN
     Indication: MULTIPLE SCLEROSIS RELAPSE
     Dosage: 5 MG, QD
     Route: 048
     Dates: start: 20070409
  13. SENNOSIDE [Concomitant]
     Active Substance: SENNOSIDES
     Indication: CONSTIPATION
     Dosage: 12 MG, QD
     Route: 048
  14. LOXONIN [Concomitant]
     Active Substance: LOXOPROFEN SODIUM
     Indication: BACK PAIN
     Dosage: 60 MG, QD
     Route: 048
  15. LAC B [Concomitant]
     Active Substance: BIFIDOBACTERIUM SPP.
     Indication: ABDOMINAL DISCOMFORT
     Dosage: 1 G, TID
     Route: 048
     Dates: start: 20090925
  16. SOLU-MEDROL [Concomitant]
     Active Substance: METHYLPREDNISOLONE SODIUM SUCCINATE
     Indication: MULTIPLE SCLEROSIS
     Dosage: 500 MG, QD
     Route: 065
     Dates: start: 20091027, end: 20091031
  17. SAWACILLIN [Concomitant]
     Active Substance: AMOXICILLIN
     Indication: HELICOBACTER INFECTION
     Dosage: 750 MG, BID
     Route: 048
     Dates: start: 20090703, end: 20090709
  18. DEPAKENE [Concomitant]
     Active Substance: VALPROIC ACID
     Dosage: 400 MG, BID
     Route: 048
     Dates: start: 20090623, end: 20090804
  19. MUCOSTA [Concomitant]
     Active Substance: REBAMIPIDE
     Indication: PROPHYLAXIS AGAINST GASTROINTESTINAL ULCER
     Dosage: 100 MG, QD
     Route: 048
  20. CERCINE [Concomitant]
     Active Substance: DIAZEPAM
     Indication: PRODUCT USED FOR UNKNOWN INDICATION
     Dosage: 2 MG, QD
     Route: 065
  21. GASTER [Concomitant]
     Active Substance: FAMOTIDINE
     Indication: PRODUCT USED FOR UNKNOWN INDICATION
     Dosage: 10 MG, BID
     Route: 065
     Dates: start: 20091027, end: 20091107
  22. EXCEGRAN [Concomitant]
     Active Substance: ZONISAMIDE
     Indication: SEIZURE
     Dosage: 50 MG, BID
     Route: 065
     Dates: start: 20091001

REACTIONS (59)
  - Brain oedema [Fatal]
  - Pancytopenia [Fatal]
  - Oesophageal neoplasm [Not Recovered/Not Resolved]
  - Oxygen saturation decreased [Fatal]
  - Pupils unequal [Fatal]
  - Dysphagia [Not Recovered/Not Resolved]
  - Ascites [Not Recovered/Not Resolved]
  - Immune system disorder [Unknown]
  - Mycosis fungoides [Fatal]
  - Leukaemic infiltration renal [Fatal]
  - Hepatic mass [Unknown]
  - Brain herniation [Fatal]
  - Helicobacter infection [Unknown]
  - Coagulopathy [Recovered/Resolved]
  - Cell marker increased [Fatal]
  - Lipoma [Not Recovered/Not Resolved]
  - Atelectasis [Not Recovered/Not Resolved]
  - Pleural effusion [Not Recovered/Not Resolved]
  - Biliary tract disorder [Unknown]
  - Depressed level of consciousness [Fatal]
  - Brain midline shift [Fatal]
  - Epstein-Barr virus antibody positive [Fatal]
  - White blood cell count decreased [Fatal]
  - Rash [Fatal]
  - Hypertrophy [Unknown]
  - Lymphangioma [Unknown]
  - Sputum retention [Fatal]
  - Interstitial lung disease [Unknown]
  - Pyrexia [Unknown]
  - Nuclear magnetic resonance imaging abnormal [Fatal]
  - Hydrocephalus [Fatal]
  - Herpes zoster [Recovered/Resolved]
  - Seizure [Fatal]
  - Pulmonary mass [Fatal]
  - Immunodeficiency [Unknown]
  - Pericardial effusion [Not Recovered/Not Resolved]
  - Diffuse large B-cell lymphoma [Fatal]
  - Haemorrhagic diathesis [Unknown]
  - Pneumonia staphylococcal [Unknown]
  - Pneumonia aspiration [Unknown]
  - Intracranial mass [Fatal]
  - Hepatosplenomegaly [Not Recovered/Not Resolved]
  - Liver disorder [Unknown]
  - Renal mass [Fatal]
  - Thrombosis [Not Recovered/Not Resolved]
  - Gastric polyps [Not Recovered/Not Resolved]
  - Lymphoproliferative disorder [Fatal]
  - Lung neoplasm [Fatal]
  - Haemorrhage [Fatal]
  - Histology abnormal [Fatal]
  - Beta 2 microglobulin increased [Fatal]
  - Spermatogenesis abnormal [Not Recovered/Not Resolved]
  - Moraxella infection [Unknown]
  - Thrombocytopenia [Unknown]
  - Platelet count decreased [Fatal]
  - Necrosis [Fatal]
  - Papule [Fatal]
  - Haemangioma [Not Recovered/Not Resolved]
  - Central nervous system lesion [Fatal]

NARRATIVE: CASE EVENT DATE: 2009
